FAERS Safety Report 7691593-X (Version None)
Quarter: 2011Q3

REPORT INFORMATION
  Report Type: 
  Country: None (occurrence: None)
  Receive Date: 20110818
  Receipt Date: 20110803
  Transmission Date: 20111222
  Serious: Yes (Hospitalization)
  Sender: FDA-Public Use
  Company Number: JP-WATSON-2011-12309

PATIENT
  Age: 64 Year
  Sex: Female

DRUGS (1)
  1. FUROSEMIDE [Suspect]
     Indication: PRODUCT USED FOR UNKNOWN INDICATION
     Dosage: 25 MG, UNK

REACTIONS (4)
  - ALTERED STATE OF CONSCIOUSNESS [None]
  - RENAL TUBULAR DISORDER [None]
  - HYPONATRAEMIA [None]
  - DEHYDRATION [None]
